FAERS Safety Report 6224784-5 (Version None)
Quarter: 2009Q2

REPORT INFORMATION
  Report Type: 
  Country: None (occurrence: None)
  Receive Date: 20090612
  Receipt Date: 20090331
  Transmission Date: 20091009
  Serious: Yes (Other)
  Sender: FDA-Public Use
  Company Number: US-ABBOTT-09P-163-0565360-00

PATIENT
  Sex: Female

DRUGS (4)
  1. HUMIRA [Suspect]
     Indication: PSORIATIC ARTHROPATHY
     Route: 058
     Dates: start: 20071001
  2. HUMIRA [Suspect]
     Indication: PSORIASIS
     Dosage: EVERY 7 - 10 DAYS
     Route: 058
  3. SYNTHROID [Concomitant]
     Indication: HYPOTHYROIDISM
  4. YAZ [Concomitant]
     Indication: CONTRACEPTION

REACTIONS (5)
  - CELLULITIS [None]
  - OESOPHAGITIS [None]
  - PSORIASIS [None]
  - WOUND [None]
  - WOUND INFECTION [None]
